FAERS Safety Report 16653514 (Version 2)
Quarter: 2019Q3

REPORT INFORMATION
  Report Type: Report from Study
  Country: NL (occurrence: NL)
  Receive Date: 20190731
  Receipt Date: 20190827
  Transmission Date: 20191004
  Serious: Yes (Other)
  Sender: FDA-Public Use
  Company Number: NL-GILEAD-2019-0419883

PATIENT
  Age: 57 Year
  Sex: Male
  Weight: 104 kg

DRUGS (28)
  1. CYCLOPHOSPHAMIDE. [Suspect]
     Active Substance: CYCLOPHOSPHAMIDE
     Indication: BONE MARROW CONDITIONING REGIMEN
     Dosage: 1138.59
     Route: 042
     Dates: start: 20190111, end: 20190111
  2. COTRIMOXAZOL [Concomitant]
     Active Substance: SULFAMETHOXAZOLE\TRIMETHOPRIM
     Dosage: 480,MG,DAILY
     Route: 048
     Dates: start: 20190110
  3. FENTANYL. [Concomitant]
     Active Substance: FENTANYL
     Dosage: 100,UG,AS NECESSARY
     Route: 050
     Dates: start: 20190110
  4. GLICLAZIDE [Concomitant]
     Active Substance: GLICLAZIDE
     Dosage: 80,MG,THREE TIMES DAILY
     Route: 048
     Dates: start: 20190124
  5. METOCLOPRAMIDE. [Concomitant]
     Active Substance: METOCLOPRAMIDE
     Dosage: 10,MG,THREE TIMES DAILY
     Route: 048
     Dates: start: 20190327
  6. FLUDARABINE [Suspect]
     Active Substance: FLUDARABINE PHOSPHATE
     Indication: BONE MARROW CONDITIONING REGIMEN
     Dosage: 68.32
     Route: 042
     Dates: start: 20190111, end: 20190111
  7. OMEPRAZOL [OMEPRAZOLE] [Concomitant]
     Active Substance: OMEPRAZOLE
     Dosage: 40,MG,TWICE DAILY
     Route: 048
     Dates: start: 20190110
  8. VALACICLOVIR [Concomitant]
     Active Substance: VALACYCLOVIR HYDROCHLORIDE
     Dosage: 500,MG,TWICE DAILY
     Route: 048
     Dates: start: 20190110
  9. CYTARABINE. [Concomitant]
     Active Substance: CYTARABINE
  10. FILGRASTIM [Concomitant]
     Active Substance: FILGRASTIM
     Dosage: ^DAYS 480 X 10^6 IE G-CSF BD^
  11. PLERIXAFOR [Concomitant]
     Active Substance: PLERIXAFOR
     Dosage: 23 MG
     Dates: start: 20190610, end: 20190610
  12. PLERIXAFOR [Concomitant]
     Active Substance: PLERIXAFOR
     Dosage: 23 MG
     Dates: start: 20190619, end: 20190619
  13. CYCLOPHOSPHAMIDE. [Suspect]
     Active Substance: CYCLOPHOSPHAMIDE
     Dosage: 1138.59
     Route: 042
     Dates: start: 20190112, end: 20190112
  14. PARACETAMOL [Concomitant]
     Active Substance: ACETAMINOPHEN
     Dosage: 1000,MG,AS NECESSARY
     Route: 048
     Dates: start: 20190114
  15. RITUXIMAB. [Concomitant]
     Active Substance: RITUXIMAB
  16. DEXAMETHASONE. [Concomitant]
     Active Substance: DEXAMETHASONE
  17. AXICABTAGENE CILOLEUCEL [Suspect]
     Active Substance: AXICABTAGENE CILOLEUCEL
     Indication: DIFFUSE LARGE B-CELL LYMPHOMA
     Dosage: 68
     Route: 042
     Dates: start: 20190116, end: 20190116
  18. CYCLOPHOSPHAMIDE. [Suspect]
     Active Substance: CYCLOPHOSPHAMIDE
     Dosage: 1138.59
     Route: 042
     Dates: start: 20190113, end: 20190113
  19. MOVICOLON [Concomitant]
     Active Substance: POLYETHYLENE GLYCOL 3350\POTASSIUM CHLORIDE\SODIUM BICARBONATE\SODIUM CHLORIDE
     Dosage: 1,OTHER,DAILY
     Route: 048
     Dates: start: 20190110
  20. OXYCODON [Concomitant]
     Active Substance: OXYCODONE
     Dosage: 5,MG,OTHER
     Route: 048
     Dates: start: 20190327
  21. LEVETIRACETAM. [Concomitant]
     Active Substance: LEVETIRACETAM
     Dosage: 750,MG,TWICE DAILY
     Route: 048
     Dates: start: 20190116
  22. TEMAZEPAM. [Concomitant]
     Active Substance: TEMAZEPAM
     Dosage: 10,MG,DAILY
     Route: 048
     Dates: start: 20190205
  23. CISPLATIN. [Concomitant]
     Active Substance: CISPLATIN
  24. LANTUS [Concomitant]
     Active Substance: INSULIN GLARGINE
     Dosage: 14,OTHER,DAILY
     Route: 058
     Dates: start: 20181212
  25. NOVORAPID [Concomitant]
     Active Substance: INSULIN ASPART
     Dosage: 3;2;5;,OTHER,THREE TIMES DAILY
     Route: 058
     Dates: start: 20181212
  26. FLUDARABINE [Suspect]
     Active Substance: FLUDARABINE PHOSPHATE
     Dosage: 68.32
     Route: 042
     Dates: start: 20190112, end: 20190112
  27. FLUDARABINE [Suspect]
     Active Substance: FLUDARABINE PHOSPHATE
     Dosage: 68.32
     Route: 042
     Dates: start: 20190113, end: 20190113
  28. PLERIXAFOR [Concomitant]
     Active Substance: PLERIXAFOR
     Dosage: 23 MG
     Dates: start: 20190618, end: 20190618

REACTIONS (1)
  - Haematopoietic stem cell mobilisation [Recovered/Resolved]

NARRATIVE: CASE EVENT DATE: 20190610
